FAERS Safety Report 18457277 (Version 1)
Quarter: 2020Q4

REPORT INFORMATION
  Report Type: Report from Study
  Country: None (occurrence: US)
  Receive Date: 20201103
  Receipt Date: 20201103
  Transmission Date: 20210114
  Serious: Yes (Other)
  Sender: FDA-Public Use
  Company Number: US-ABBVIE-20K-163-3630672-00

PATIENT
  Sex: Male

DRUGS (3)
  1. XTANDI [Suspect]
     Active Substance: ENZALUTAMIDE
     Indication: PROSTATE CANCER
     Route: 048
     Dates: start: 20190820
  2. LUPRON DEPOT [Suspect]
     Active Substance: LEUPROLIDE ACETATE
     Indication: PRODUCT USED FOR UNKNOWN INDICATION
     Route: 065
  3. XGEVA [Suspect]
     Active Substance: DENOSUMAB
     Indication: PRODUCT USED FOR UNKNOWN INDICATION
     Route: 065

REACTIONS (30)
  - Urinary tract infection [Unknown]
  - Onycholysis [Unknown]
  - Taste disorder [Unknown]
  - Feeling of despair [Unknown]
  - Pain in extremity [Unknown]
  - Feminisation acquired [Unknown]
  - Defaecation urgency [Unknown]
  - Skin laxity [Unknown]
  - Malaise [Unknown]
  - Depression [Unknown]
  - Testicular atrophy [Unknown]
  - Psoriasis [Unknown]
  - Skin exfoliation [Unknown]
  - Alopecia [Unknown]
  - Tremor [Unknown]
  - Fatigue [Unknown]
  - Hunger [Recovering/Resolving]
  - Skin disorder [Unknown]
  - Arthritis [Unknown]
  - Memory impairment [Unknown]
  - Breast enlargement [Unknown]
  - Hot flush [Recovering/Resolving]
  - Psoriatic arthropathy [Unknown]
  - Nocturia [Unknown]
  - Weight increased [Unknown]
  - Pulmonary congestion [Unknown]
  - Fat redistribution [Unknown]
  - Rhinorrhoea [Unknown]
  - Musculoskeletal chest pain [Unknown]
  - Chest discomfort [Unknown]
